FAERS Safety Report 17667558 (Version 2)
Quarter: 2020Q3

REPORT INFORMATION
  Report Type: Spontaneous
  Country: US (occurrence: US)
  Receive Date: 20200414
  Receipt Date: 20200710
  Transmission Date: 20201102
  Serious: No
  Sender: FDA-Public Use
  Company Number: US-ENDO PHARMACEUTICALS INC-2020-002196

PATIENT
  Sex: Female
  Weight: 100.23 kg

DRUGS (3)
  1. REVATIO [Concomitant]
     Active Substance: SILDENAFIL CITRATE
     Indication: PRODUCT USED FOR UNKNOWN INDICATION
     Dosage: UNK
  2. TREPROSTINIL. [Suspect]
     Active Substance: TREPROSTINIL
     Indication: PRODUCT USED FOR UNKNOWN INDICATION
     Dosage: UNK UNKNOWN, UNKNOWN
     Route: 065
     Dates: start: 2019
  3. REMODULIN [Suspect]
     Active Substance: TREPROSTINIL
     Indication: PULMONARY ARTERIAL HYPERTENSION
     Dosage: 100NG/KG/MIN, CONTINUOUS
     Route: 042
     Dates: start: 20110727

REACTIONS (7)
  - Feeling hot [Recovering/Resolving]
  - Chest discomfort [Recovering/Resolving]
  - Wheezing [Unknown]
  - Ill-defined disorder [Recovering/Resolving]
  - Diarrhoea [Recovering/Resolving]
  - Product substitution issue [Unknown]
  - Dyspnoea [Not Recovered/Not Resolved]

NARRATIVE: CASE EVENT DATE: 2019
